FAERS Safety Report 14355992 (Version 1)
Quarter: 2018Q1

REPORT INFORMATION
  Report Type: Spontaneous
  Country: US (occurrence: US)
  Receive Date: 20180104
  Receipt Date: 20180104
  Transmission Date: 20180509
  Serious: Yes (Hospitalization)
  Sender: FDA-Public Use
  Company Number: None

PATIENT
  Age: 68 Year
  Sex: Male

DRUGS (1)
  1. NAPROXEN. [Suspect]
     Active Substance: NAPROXEN
     Indication: PAIN
     Route: 048
     Dates: start: 20171020, end: 20171226

REACTIONS (11)
  - Gastritis [None]
  - Upper gastrointestinal haemorrhage [None]
  - Diarrhoea [None]
  - Gastric haemorrhage [None]
  - Bleeding varicose vein [None]
  - Dizziness [None]
  - Hepatic cirrhosis [None]
  - Vomiting [None]
  - Melaena [None]
  - Fall [None]
  - Peptic ulcer [None]

NARRATIVE: CASE EVENT DATE: 20171226
